FAERS Safety Report 6846397-4 (Version None)
Quarter: 2010Q3

REPORT INFORMATION
  Report Type: 
  Country: None (occurrence: None)
  Receive Date: 20100715
  Receipt Date: 20070918
  Transmission Date: 20110219
  Serious: No
  Sender: FDA-Public Use
  Company Number: US-PFIZER INC-2007078120

PATIENT
  Sex: Female
  Weight: 68.2 kg

DRUGS (5)
  1. CHANTIX [Suspect]
     Indication: SMOKING CESSATION THERAPY
     Dosage: 0.5MG QD EVERYDAY TDD:0.5MG
     Dates: start: 20070903
  2. LIPITOR [Concomitant]
     Indication: BLOOD CHOLESTEROL INCREASED
  3. MULTI-VITAMINS [Concomitant]
  4. VITAMIN B-12 [Concomitant]
  5. VITAMIN D [Concomitant]

REACTIONS (2)
  - FATIGUE [None]
  - INSOMNIA [None]
